FAERS Safety Report 8996763 (Version 1)
Quarter: 2012Q4

REPORT INFORMATION
  Report Type: Spontaneous
  Country: US (occurrence: None)
  Receive Date: 20121228
  Receipt Date: 20121228
  Transmission Date: 20130627
  Serious: Yes (Other)
  Sender: FDA-Public Use
  Company Number: None

PATIENT
  Sex: Female
  Weight: 58.97 kg

DRUGS (1)
  1. WELCHOL [Suspect]
     Indication: LAB TEST ABNORMAL
     Dates: start: 20121204

REACTIONS (2)
  - Throat tightness [None]
  - Vomiting [None]
